FAERS Safety Report 5400061-7 (Version None)
Quarter: 2007Q3

REPORT INFORMATION
  Report Type: 
  Country: None (occurrence: None)
  Receive Date: 20070730
  Receipt Date: 20070717
  Transmission Date: 20080115
  Serious: Yes (Hospitalization)
  Sender: FDA-Public Use
  Company Number: CS-NOVOPROD-264152

PATIENT

DRUGS (2)
  1. NOVORAPID FLEXPEN [Suspect]
     Indication: TYPE 1 DIABETES MELLITUS
     Dosage: 34 IU, UNK
     Dates: start: 20061120
  2. LEVEMIR [Suspect]
     Indication: TYPE 1 DIABETES MELLITUS
     Dosage: 12 IU, UNK
     Route: 058
     Dates: start: 20061120

REACTIONS (5)
  - ASTHENIA [None]
  - DIARRHOEA [None]
  - HEADACHE [None]
  - HYPOGLYCAEMIA [None]
  - VOMITING [None]
